FAERS Safety Report 22310431 (Version 9)
Quarter: 2023Q4

REPORT INFORMATION
  Report Type: Spontaneous
  Country: US (occurrence: US)
  Receive Date: 20230511
  Receipt Date: 20231218
  Transmission Date: 20240110
  Serious: Yes (Hospitalization, Other)
  Sender: FDA-Public Use
  Company Number: US-PFIZER INC-202101688982

PATIENT
  Age: 61 Year
  Sex: Female
  Weight: 72.109 kg

DRUGS (2)
  1. RETACRIT [Suspect]
     Active Substance: EPOETIN ALFA-EPBX
     Indication: Chronic kidney disease
     Dosage: 20,000 UNITS AS DIRECTED EVERY 30 (THIRTY) DAYS
     Route: 058
  2. RETACRIT [Suspect]
     Active Substance: EPOETIN ALFA-EPBX
     Indication: Anaemia
     Dosage: 20000 IU (TWO VIALS OF 10000 UNITS)
     Route: 058

REACTIONS (5)
  - Lower limb fracture [Unknown]
  - Haemoglobin decreased [Unknown]
  - Accident [Unknown]
  - Off label use [Unknown]
  - Product dispensing error [Unknown]

NARRATIVE: CASE EVENT DATE: 20230704
